FAERS Safety Report 20263835 (Version 1)
Quarter: 2021Q4

REPORT INFORMATION
  Report Type: Spontaneous
  Country: US (occurrence: None)
  Receive Date: 20211230
  Receipt Date: 20211230
  Transmission Date: 20220303
  Serious: Yes (Death)
  Sender: FDA-Public Use
  Company Number: None

PATIENT
  Age: 20 Year
  Sex: Female
  Weight: 30 kg

DRUGS (22)
  1. REMDESIVIR [Suspect]
     Active Substance: REMDESIVIR
     Indication: COVID-19
     Dosage: FREQUENCY : DAILY;?
     Route: 042
     Dates: start: 20211226, end: 20211226
  2. lorazepman (Ativan) [Concomitant]
     Dates: start: 20211226, end: 20211226
  3. KETAMINE [Concomitant]
     Active Substance: KETAMINE
     Dates: start: 20211226, end: 20211226
  4. HYDROCORTISONE [Concomitant]
     Active Substance: HYDROCORTISONE
     Dates: start: 20211226, end: 20211227
  5. FENTANYL [Concomitant]
     Active Substance: FENTANYL
     Dates: start: 20211226, end: 20211227
  6. LEVOTHYROXINE [Concomitant]
     Active Substance: LEVOTHYROXINE
     Dates: start: 20211226, end: 20211227
  7. POTASSIUM CHLORIDE [Concomitant]
     Active Substance: POTASSIUM CHLORIDE
     Dates: start: 20211226, end: 20211226
  8. SODIUM BICARBONATE [Concomitant]
     Active Substance: SODIUM BICARBONATE
     Dates: start: 20211226, end: 20211226
  9. KEPPRA [Concomitant]
     Active Substance: LEVETIRACETAM
     Dates: start: 20211226, end: 20211227
  10. CEFTRIAXONE [Concomitant]
     Active Substance: CEFTRIAXONE
     Dates: start: 20211226, end: 20211226
  11. MEROPENEM [Concomitant]
     Active Substance: MEROPENEM
     Dates: start: 20211226, end: 20211226
  12. FAMOTIDINE [Concomitant]
     Active Substance: FAMOTIDINE
     Dates: start: 20211226, end: 20211227
  13. LINEZOLID [Concomitant]
     Active Substance: LINEZOLID
     Dates: start: 20211226, end: 20211227
  14. CEFEPIME [Concomitant]
     Active Substance: CEFEPIME HYDROCHLORIDE
     Dates: start: 20211226, end: 20211227
  15. dexmedetomidine titration drip [Concomitant]
     Dates: start: 20211226, end: 20211228
  16. epinephrine gtt [Concomitant]
     Dates: start: 20211226, end: 20211228
  17. acetaminophen (Ofirmev) [Concomitant]
     Dates: start: 20211227, end: 20211227
  18. LASIX [Concomitant]
     Active Substance: FUROSEMIDE
     Dates: start: 20211227, end: 20211227
  19. VECURONIUM [Concomitant]
     Active Substance: VECURONIUM BROMIDE
     Dates: start: 20211227, end: 20211227
  20. CALCIUM CHLORIDE [Concomitant]
     Active Substance: CALCIUM CHLORIDE
     Dates: start: 20211227, end: 20211227
  21. norephinephrine gtt [Concomitant]
     Dates: start: 20211227, end: 20211228
  22. vasopressin drip [Concomitant]
     Dates: start: 20211227, end: 20211228

REACTIONS (1)
  - Death [None]

NARRATIVE: CASE EVENT DATE: 20211228
